FAERS Safety Report 9523433 (Version 3)
Quarter: 2014Q1

REPORT INFORMATION
  Report Type: Spontaneous
  Country: US (occurrence: None)
  Receive Date: 20130305
  Receipt Date: 20140306
  Transmission Date: 20141002
  Serious: Yes (Hospitalization, Other)
  Sender: FDA-Public Use
  Company Number: 163-21880-12012650

PATIENT
  Age: 75 Year
  Sex: Male

DRUGS (2)
  1. REVLIMID [Suspect]
     Indication: MYELODYSPLASTIC SYNDROME
     Dosage: 10 MG, 21 IN 28 D
     Route: 048
     Dates: start: 20120112, end: 20120119
  2. HEART MEDICINES [Concomitant]

REACTIONS (4)
  - Full blood count decreased [None]
  - Infection [None]
  - Diarrhoea [None]
  - Large intestinal haemorrhage [None]
